FAERS Safety Report 6198471-6 (Version None)
Quarter: 2009Q2

REPORT INFORMATION
  Report Type: 
  Country: None (occurrence: None)
  Receive Date: 20090521
  Receipt Date: 20090512
  Transmission Date: 20091009
  Serious: Yes (Other)
  Sender: FDA-Public Use
  Company Number: PHHY2009GB19039

PATIENT
  Sex: Male

DRUGS (3)
  1. CLOZARIL [Suspect]
     Indication: SCHIZOPHRENIA, PARANOID TYPE
     Dosage: 200 MG
     Route: 048
     Dates: start: 20081117
  2. ZUCLOPENTHIXOL [Concomitant]
     Indication: AGITATION
     Dosage: 2-6 MG, PRN
     Route: 048
     Dates: start: 20050101
  3. ZUCLOPENTHIXOL [Concomitant]
     Indication: AGGRESSION

REACTIONS (7)
  - JAW DISORDER [None]
  - MONOCYTOSIS [None]
  - PAIN IN JAW [None]
  - PAROTID GLAND ENLARGEMENT [None]
  - SWELLING [None]
  - TONSILLAR HYPERTROPHY [None]
  - TONSILLITIS [None]
